FAERS Safety Report 18692418 (Version 2)
Quarter: 2022Q1

REPORT INFORMATION
  Report Type: Spontaneous
  Country: IT (occurrence: IT)
  Receive Date: 20210103
  Receipt Date: 20220222
  Transmission Date: 20220423
  Serious: Yes (Hospitalization, Other)
  Sender: FDA-Public Use
  Company Number: IT-RATIOPH-2010R0907133

PATIENT
  Age: 66 Year
  Sex: Male

DRUGS (4)
  1. LOSARTAN [Interacting]
     Active Substance: LOSARTAN
     Indication: Hypertension
     Dosage: NI
     Route: 048
  2. SILDENAFIL [Interacting]
     Active Substance: SILDENAFIL
     Indication: Erectile dysfunction
     Dosage: PATIENT WAS ON SILDENAFIL INFREQUENTLY; NEVER USED SILDENAFIL SINCE HE STARTED WITH ROSUVASTATIN
     Route: 048
  3. ROSUVASTATIN [Interacting]
     Active Substance: ROSUVASTATIN
     Dosage: 10 MILLIGRAM DAILY;
     Route: 065
  4. METFORMIN [Concomitant]
     Active Substance: METFORMIN HYDROCHLORIDE
     Indication: Diabetes mellitus
     Dosage: NI
     Route: 065

REACTIONS (4)
  - Rhabdomyolysis [Recovered/Resolved]
  - Drug interaction [Recovered/Resolved]
  - Drug interaction [Recovered/Resolved]
  - Priapism [Recovered/Resolved]
